FAERS Safety Report 10178642 (Version 1)
Quarter: 2014Q2

REPORT INFORMATION
  Report Type: Spontaneous
  Country: US (occurrence: None)
  Receive Date: 20140516
  Receipt Date: 20140516
  Transmission Date: 20141212
  Serious: Yes (Disabling)
  Sender: FDA-Public Use
  Company Number: None

PATIENT
  Age: 84 Year
  Sex: Female
  Weight: 67.13 kg

DRUGS (9)
  1. LEVAQUIN [Suspect]
     Indication: CYSTITIS
     Dosage: 500MG?5 PILLS?ONCE DAILY ?ORAL
     Route: 048
     Dates: start: 20130930, end: 20131004
  2. LISINOPRIL [Concomitant]
  3. LTHYROXINE [Concomitant]
  4. PRAVASTATIN [Concomitant]
  5. LANTUS [Concomitant]
  6. NOVOLOG [Concomitant]
  7. METFORMIN [Concomitant]
  8. ADVAIR [Concomitant]
  9. ASPIRIN [Concomitant]

REACTIONS (1)
  - Diarrhoea [None]
